FAERS Safety Report 13363327 (Version 3)
Quarter: 2017Q2

REPORT INFORMATION
  Report Type: Spontaneous
  Country: JP (occurrence: JP)
  Receive Date: 20170323
  Receipt Date: 20170427
  Transmission Date: 20170830
  Serious: Yes (Other)
  Sender: FDA-Public Use
  Company Number: JP-009507513-1703JPN001507J

PATIENT

DRUGS (2)
  1. REBETOL [Suspect]
     Active Substance: RIBAVIRIN
     Dosage: UNK
     Route: 048
  2. SOVALDI [Concomitant]
     Active Substance: SOFOSBUVIR
     Dosage: UNK
     Route: 048

REACTIONS (4)
  - Depressive symptom [Unknown]
  - Anaemia [Unknown]
  - Urinary tract infection [Unknown]
  - Myocardial infarction [Unknown]
